FAERS Safety Report 17942466 (Version 2)
Quarter: 2020Q3

REPORT INFORMATION
  Report Type: Report from Study
  Country: US (occurrence: US)
  Receive Date: 20200624
  Receipt Date: 20200722
  Transmission Date: 20201103
  Serious: Yes (Hospitalization, Other)
  Sender: FDA-Public Use
  Company Number: US-GILEAD-2020-0464301

PATIENT
  Age: 64 Year
  Sex: Female

DRUGS (3)
  1. ADCIRCA [Concomitant]
     Active Substance: TADALAFIL
  2. AMBRISENTAN [Suspect]
     Active Substance: AMBRISENTAN
     Indication: PULMONARY ARTERIAL HYPERTENSION
     Dosage: 10 MG, QD
     Route: 048
     Dates: start: 20200408
  3. UPTRAVI [Concomitant]
     Active Substance: SELEXIPAG

REACTIONS (7)
  - Dyspnoea [Unknown]
  - Peripheral swelling [Unknown]
  - Cardio-respiratory arrest [Recovered/Resolved]
  - Fluid retention [Unknown]
  - Transient ischaemic attack [Unknown]
  - Haemoglobin decreased [Unknown]
  - Pyrexia [Unknown]
